FAERS Safety Report 8480698-1 (Version None)
Quarter: 2012Q3

REPORT INFORMATION
  Report Type: 
  Country: None (occurrence: None)
  Receive Date: 20120702
  Receipt Date: 20120625
  Transmission Date: 20120928
  Serious: No
  Sender: FDA-Public Use
  Company Number: US-PFIZER INC-2012152314

PATIENT
  Sex: Male
  Weight: 127 kg

DRUGS (5)
  1. PLAVIX [Concomitant]
     Indication: ARTERIAL DISORDER
     Dosage: 75 MG, DAILY
  2. LYRICA [Suspect]
     Dosage: 225 MG, 2X/DAY
     Route: 048
     Dates: start: 20110901
  3. ISOSORBIDE [Concomitant]
     Indication: ANGINA PECTORIS
     Dosage: 50 MG, DAILY
  4. ZOCOR [Concomitant]
     Indication: BLOOD CHOLESTEROL ABNORMAL
     Dosage: 20 MG, DAILY
  5. LYRICA [Suspect]
     Indication: FIBROMYALGIA
     Dosage: 225 MG, 2X/DAY
     Route: 048
     Dates: end: 20110901

REACTIONS (4)
  - INSOMNIA [None]
  - HOT FLUSH [None]
  - WITHDRAWAL SYNDROME [None]
  - IRRITABILITY [None]
